FAERS Safety Report 18209365 (Version 1)
Quarter: 2020Q3

REPORT INFORMATION
  Report Type: Spontaneous
  Country: BR (occurrence: BR)
  Receive Date: 20200828
  Receipt Date: 20200828
  Transmission Date: 20201103
  Serious: Yes (Life-Threatening, Hospitalization, Other)
  Sender: FDA-Public Use
  Company Number: NVSC2020BR237711

PATIENT
  Sex: Female

DRUGS (2)
  1. KEPPRA [Suspect]
     Active Substance: LEVETIRACETAM
     Indication: SEIZURE
     Dosage: 3 DF, QD
     Route: 065
  2. TRILEPTAL [Suspect]
     Active Substance: OXCARBAZEPINE
     Indication: SEIZURE
     Dosage: UNK, TID
     Route: 065

REACTIONS (8)
  - Ill-defined disorder [Unknown]
  - Cerebrovascular accident [Unknown]
  - Visual impairment [Unknown]
  - Somnolence [Unknown]
  - Spinal disorder [Unknown]
  - Seizure [Unknown]
  - Drug ineffective [Unknown]
  - Fatigue [Unknown]
